FAERS Safety Report 14599555 (Version 1)
Quarter: 2018Q1

REPORT INFORMATION
  Report Type: Spontaneous
  Country: US (occurrence: US)
  Receive Date: 20180305
  Receipt Date: 20180305
  Transmission Date: 20180509
  Serious: No
  Sender: FDA-Public Use
  Company Number: US-009507513-1802USA013703

PATIENT
  Sex: Female

DRUGS (3)
  1. BELSOMRA [Suspect]
     Active Substance: SUVOREXANT
     Indication: INSOMNIA
     Dosage: 20 MG AT NIGHT
     Route: 048
     Dates: end: 20180225
  2. BELSOMRA [Suspect]
     Active Substance: SUVOREXANT
     Indication: INSOMNIA
     Dosage: 15 MG AT NIGHT
     Route: 048
  3. BELSOMRA [Suspect]
     Active Substance: SUVOREXANT
     Indication: INSOMNIA
     Dosage: 10 MG AT NIGHT
     Route: 048

REACTIONS (4)
  - Decreased appetite [Recovered/Resolved]
  - Asthenia [Recovered/Resolved]
  - Abdominal discomfort [Recovered/Resolved]
  - Nausea [Recovered/Resolved]
